FAERS Safety Report 19546582 (Version 1)
Quarter: 2021Q3

REPORT INFORMATION
  Report Type: Report from Study
  Country: IT (occurrence: IT)
  Receive Date: 20210714
  Receipt Date: 20210714
  Transmission Date: 20211014
  Serious: Yes (Hospitalization)
  Sender: FDA-Public Use
  Company Number: IT-TEVA-2021-IT-1931670

PATIENT
  Age: 92 Year
  Sex: Male

DRUGS (10)
  1. RANEXA 750 MG PROLONGED?RELEASE TABLETS [Concomitant]
  2. FUROSEMIDE. [Concomitant]
     Active Substance: FUROSEMIDE
  3. BROMAZEPAM [Suspect]
     Active Substance: BROMAZEPAM
     Route: 065
  4. SLOWMET 1000 MG COMPRESSE A RILASCIO PROLUNGATO [Concomitant]
  5. PANTOPRAZOLE [Concomitant]
     Active Substance: PANTOPRAZOLE
  6. DIAMICRON 60 MG COMPRESSE A RILASCIO MODIFICATO [Concomitant]
  7. GABAPENTIN. [Concomitant]
     Active Substance: GABAPENTIN
  8. LIXIANA 30 MG FILM?COATED TABLETS [Concomitant]
     Active Substance: EDOXABAN TOSYLATE
  9. DIAZEPAM. [Suspect]
     Active Substance: DIAZEPAM
     Route: 065
     Dates: start: 20210608, end: 20210608
  10. LUVION 50 MG COMPRESSE [Concomitant]
     Active Substance: CANRENONE

REACTIONS (2)
  - Substance abuse [Recovering/Resolving]
  - Sopor [Recovering/Resolving]

NARRATIVE: CASE EVENT DATE: 20210608
